FAERS Safety Report 10050506 (Version 1)
Quarter: 2014Q2

REPORT INFORMATION
  Report Type: Spontaneous
  Country: US (occurrence: US)
  Receive Date: 20140401
  Receipt Date: 20140401
  Transmission Date: 20141212
  Serious: No
  Sender: FDA-Public Use
  Company Number: US-ASTRAZENECA-2013SE88762

PATIENT
  Age: 74 Year
  Sex: Female
  Weight: 68 kg

DRUGS (4)
  1. NEXIUM [Suspect]
     Route: 048
  2. METOPROLOL SUCCINATE ER [Suspect]
     Route: 048
  3. AMLIODIPINE [Concomitant]
     Dosage: 5 MGS DAILY
     Route: 048
  4. APRAZALAM [Concomitant]
     Indication: ANXIETY
     Dosage: .25 MGS PRN
     Route: 048

REACTIONS (2)
  - Diarrhoea [Not Recovered/Not Resolved]
  - Frequent bowel movements [Not Recovered/Not Resolved]
